FAERS Safety Report 8269031-8 (Version None)
Quarter: 2012Q2

REPORT INFORMATION
  Report Type: 
  Country: None (occurrence: None)
  Receive Date: 20120409
  Receipt Date: 20120329
  Transmission Date: 20120825
  Serious: Yes (Other)
  Sender: FDA-Public Use
  Company Number: US-ASTRAZENECA-2012SE21116

PATIENT
  Sex: Male

DRUGS (1)
  1. SEROQUEL [Suspect]
     Indication: SLEEP DISORDER
     Route: 048

REACTIONS (2)
  - JOINT INJURY [None]
  - OFF LABEL USE [None]
